FAERS Safety Report 4706481-8 (Version None)
Quarter: 2005Q3

REPORT INFORMATION
  Report Type: 
  Country: None (occurrence: None)
  Receive Date: 20050705
  Receipt Date: 20050609
  Transmission Date: 20060218
  Serious: Yes (Hospitalization)
  Sender: FDA-Public Use
  Company Number: FR-GLAXOSMITHKLINE-B0384653A

PATIENT
  Age: 40 Year
  Sex: Female
  Weight: 63 kg

DRUGS (8)
  1. AUGMENTIN '125' [Suspect]
     Indication: INFECTION
     Dosage: 3G PER DAY
     Route: 048
     Dates: start: 20050425, end: 20050502
  2. PIPORTIL [Suspect]
     Dosage: 30MG PER DAY
     Route: 048
  3. DEPAKOTE [Concomitant]
     Dosage: 1G PER DAY
     Route: 048
     Dates: start: 20041007
  4. PARKINANE LP [Concomitant]
     Dosage: 5MG PER DAY
     Route: 048
     Dates: start: 20020201
  5. SERESTA 50 [Concomitant]
     Dosage: 25MG PER DAY
     Route: 048
     Dates: start: 20050210
  6. LEDERFOLINE [Concomitant]
     Dosage: 15MG PER DAY
     Route: 048
     Dates: start: 20050401
  7. LACTULOSE [Concomitant]
     Dosage: 3TAB PER DAY
     Route: 048
  8. VITAMIN B-12 [Concomitant]
     Dosage: 1TAB PER DAY
     Route: 048

REACTIONS (4)
  - HYPERGLYCAEMIA [None]
  - SKIN DISORDER [None]
  - THROMBOCYTOPENIA [None]
  - TOXIC EPIDERMAL NECROLYSIS [None]
